FAERS Safety Report 5614304-8 (Version None)
Quarter: 2008Q1

REPORT INFORMATION
  Report Type: 
  Country: None (occurrence: None)
  Receive Date: 20080205
  Receipt Date: 20080124
  Transmission Date: 20080703
  Serious: Yes (Hospitalization, Other)
  Sender: FDA-Public Use
  Company Number: JP-PFIZER INC-2007107173

PATIENT
  Sex: Female
  Weight: 39 kg

DRUGS (13)
  1. EPLERENONE [Suspect]
     Indication: HYPERTENSION
     Route: 048
     Dates: start: 20071117, end: 20071203
  2. ARTIST [Suspect]
     Indication: HYPERTENSION
     Route: 048
     Dates: start: 20071108, end: 20071123
  3. CALBLOCK [Suspect]
     Indication: HYPERTENSION
     Route: 048
     Dates: start: 20070723, end: 20071206
  4. LASIX [Suspect]
     Indication: HYPERTENSION
     Route: 048
     Dates: start: 20070723, end: 20071126
  5. MEXITIL [Suspect]
     Indication: ARRHYTHMIA
     Dosage: DAILY DOSE:100MG-FREQ:TID
     Route: 048
     Dates: start: 20070723, end: 20071206
  6. CARDENALIN [Concomitant]
     Indication: HYPERTENSION
     Route: 048
  7. IMIDAPRIL HYDROCHLORIDE [Concomitant]
     Route: 048
     Dates: start: 20070723, end: 20071116
  8. NORVASC [Concomitant]
     Indication: HYPERTENSION
     Route: 048
  9. OLMETEC [Concomitant]
     Indication: HYPERTENSION
     Route: 048
  10. ASPIRIN [Concomitant]
     Indication: CEREBRAL INFARCTION
     Route: 048
  11. GASLON [Concomitant]
     Indication: GASTRITIS
     Route: 048
  12. TALION [Concomitant]
     Indication: HYPERSENSITIVITY
     Route: 048
     Dates: start: 20070723, end: 20071130
  13. MAGNESIUM OXIDE [Concomitant]
     Indication: CONSTIPATION
     Route: 048

REACTIONS (1)
  - BRADYCARDIA [None]
